FAERS Safety Report 20759743 (Version 1)
Quarter: 2022Q2

REPORT INFORMATION
  Report Type: Spontaneous
  Country: US (occurrence: US)
  Receive Date: 20220427
  Receipt Date: 20220427
  Transmission Date: 20220721
  Serious: No
  Sender: FDA-Public Use
  Company Number: US-PFIZER INC-202101539799

PATIENT
  Age: 2 Year
  Sex: Female

DRUGS (2)
  1. EUCRISA [Suspect]
     Active Substance: CRISABOROLE
     Indication: Eczema eyelids
     Dosage: UNK, DAILY (APPLY TO EYELIDS DAILY, CAREFUL NOT TO GET IN THE EYES)
     Route: 061
  2. EUCRISA [Suspect]
     Active Substance: CRISABOROLE
     Dosage: UNK, 2X/DAY (APPLY TO AFFECTED AREA (EYELIDS) TWICE DAILY)
     Route: 061

REACTIONS (2)
  - Eczema [Unknown]
  - Off label use [Unknown]
